FAERS Safety Report 14343398 (Version 5)
Quarter: 2018Q3

REPORT INFORMATION
  Report Type: Spontaneous
  Country: CZ (occurrence: CZ)
  Receive Date: 20180102
  Receipt Date: 20180806
  Transmission Date: 20181010
  Serious: Yes (Other)
  Sender: FDA-Public Use
  Company Number: CZ-SA-2017SA265455

PATIENT
  Age: 54 Year
  Sex: Female

DRUGS (2)
  1. METFORMIN HYDROCHLORIDE. [Suspect]
     Active Substance: METFORMIN HYDROCHLORIDE
     Indication: DIABETES MELLITUS
     Dosage: UNK UNK,QD
     Route: 048
     Dates: start: 199101
  2. GLIMEPIRIDE. [Suspect]
     Active Substance: GLIMEPIRIDE
     Indication: DIABETES MELLITUS
     Dosage: 3 MG,UNK
     Route: 048
     Dates: start: 199404

REACTIONS (5)
  - Drug ineffective [Unknown]
  - Insulin C-peptide increased [Recovered/Resolved]
  - Blood glucose increased [Recovered/Resolved]
  - Flatulence [Recovered/Resolved]
  - Diabetes mellitus inadequate control [Recovered/Resolved]

NARRATIVE: CASE EVENT DATE: 200403
